FAERS Safety Report 7013984-2 (Version None)
Quarter: 2010Q3

REPORT INFORMATION
  Report Type: 
  Country: None (occurrence: None)
  Receive Date: 20100926
  Receipt Date: 20100915
  Transmission Date: 20110219
  Serious: Yes (Other)
  Sender: FDA-Public Use
  Company Number: PHHY2010CA61878

PATIENT
  Sex: Female

DRUGS (1)
  1. ACLASTA [Suspect]

REACTIONS (7)
  - ARTHRALGIA [None]
  - HEADACHE [None]
  - INFLUENZA LIKE ILLNESS [None]
  - MIGRAINE [None]
  - MYALGIA [None]
  - PYREXIA [None]
  - RASH GENERALISED [None]
